FAERS Safety Report 24211583 (Version 2)
Quarter: 2024Q3

REPORT INFORMATION
  Report Type: Spontaneous
  Country: US (occurrence: US)
  Receive Date: 20240814
  Receipt Date: 20240913
  Transmission Date: 20241017
  Serious: No
  Sender: SUNOVION
  Company Number: US-SUMITOMO PHARMA SWITZERLAND GMBH-2024SPA000829

PATIENT

DRUGS (1)
  1. GEMTESA [Suspect]
     Active Substance: VIBEGRON
     Indication: Stress urinary incontinence
     Dosage: 75 MG, QD, TAKEN IN THE MORNING, ONCE DAILY.
     Route: 048
     Dates: start: 202407

REACTIONS (2)
  - Urinary incontinence [Unknown]
  - Drug ineffective [Unknown]

NARRATIVE: CASE EVENT DATE: 20240701
